FAERS Safety Report 20406102 (Version 4)
Quarter: 2022Q2

REPORT INFORMATION
  Report Type: Spontaneous
  Country: JP (occurrence: JP)
  Receive Date: 20220131
  Receipt Date: 20220601
  Transmission Date: 20220720
  Serious: Yes (Other)
  Sender: FDA-Public Use
  Company Number: JP-GLAXOSMITHKLINE-JP2022JPN015420

PATIENT

DRUGS (5)
  1. BENLYSTA [Suspect]
     Active Substance: BELIMUMAB
     Indication: Systemic lupus erythematosus
     Dosage: 200 MG, WE
     Route: 058
     Dates: start: 20211129, end: 20211213
  2. PREDONINE [Concomitant]
     Active Substance: PREDNISOLONE
     Indication: Systemic lupus erythematosus
     Dosage: 10 MG, 1D
     Route: 048
     Dates: start: 202104
  3. PLAQUENIL [Concomitant]
     Active Substance: HYDROXYCHLOROQUINE SULFATE
     Indication: Systemic lupus erythematosus
     Dosage: 300 MG ALTERNATING 200 MG AND 300 MG
     Route: 048
     Dates: start: 202104
  4. MYCOPHENOLATE MOFETIL [Concomitant]
     Active Substance: MYCOPHENOLATE MOFETIL
     Dosage: UNK
  5. PREDNISOLONE [Concomitant]
     Active Substance: PREDNISOLONE
     Indication: Systemic lupus erythematosus
     Dosage: 1 MG, 1D
     Route: 048
     Dates: start: 202104

REACTIONS (5)
  - Hallucination, visual [Recovered/Resolved]
  - Nervous system disorder [Recovered/Resolved]
  - Feeling abnormal [Recovered/Resolved]
  - Amnesia [Recovered/Resolved]
  - Injection site pain [Recovered/Resolved]

NARRATIVE: CASE EVENT DATE: 20211129
